FAERS Safety Report 21910959 (Version 3)
Quarter: 2023Q1

REPORT INFORMATION
  Report Type: Spontaneous
  Country: JP (occurrence: JP)
  Receive Date: 20230125
  Receipt Date: 20230313
  Transmission Date: 20230418
  Serious: Yes (Hospitalization, Disabling)
  Sender: FDA-Public Use
  Company Number: JP-Eisai-202209649_LEN-HCC_P_1

PATIENT
  Sex: Male

DRUGS (3)
  1. LENVIMA [Suspect]
     Active Substance: LENVATINIB
     Indication: Hepatocellular carcinoma
     Route: 048
     Dates: start: 20220419, end: 2022
  2. LENVIMA [Suspect]
     Active Substance: LENVATINIB
     Dosage: 4 DAYS ON/3 DAYS OFF SCHEDULE
     Route: 048
     Dates: start: 2022, end: 20220929
  3. LENVIMA [Suspect]
     Active Substance: LENVATINIB
     Dosage: 4 DAYS ON/3 DAYS OFF SCHEDULE
     Route: 048
     Dates: start: 20221109

REACTIONS (5)
  - Nephrotic syndrome [Recovering/Resolving]
  - Proteinuria [Recovered/Resolved with Sequelae]
  - Renal failure [Unknown]
  - Decreased appetite [Not Recovered/Not Resolved]
  - Malaise [Not Recovered/Not Resolved]

NARRATIVE: CASE EVENT DATE: 20220929
